FAERS Safety Report 20571000 (Version 2)
Quarter: 2024Q3

REPORT INFORMATION
  Report Type: Spontaneous
  Country: US (occurrence: US)
  Receive Date: 20220309
  Receipt Date: 20240913
  Transmission Date: 20241017
  Serious: Yes (Death, Disabling, Other)
  Sender: ORGANON
  Company Number: US-ORGANON-O2203USA000751

PATIENT
  Sex: Male

DRUGS (16)
  1. SINGULAIR [Suspect]
     Active Substance: MONTELUKAST SODIUM
     Indication: Asthma
     Dosage: UNK
     Route: 048
     Dates: start: 2005
  2. SINGULAIR [Suspect]
     Active Substance: MONTELUKAST SODIUM
     Indication: Rhinitis allergic
     Dosage: 10 MILLIGRAM, QD (QHS FOR 30 DAYS)
     Route: 048
     Dates: start: 2009, end: 2021
  3. FLOVENT HFA [Concomitant]
     Active Substance: FLUTICASONE PROPIONATE
     Indication: Asthma
     Dosage: 110 MICROGRAM
     Dates: start: 2011
  4. FLOVENT HFA [Concomitant]
     Active Substance: FLUTICASONE PROPIONATE
     Indication: Rhinitis allergic
  5. PROAIR HFA [Concomitant]
     Active Substance: ALBUTEROL SULFATE
     Indication: Asthma
     Dosage: 2 PUFF
     Dates: start: 2010
  6. PROAIR HFA [Concomitant]
     Active Substance: ALBUTEROL SULFATE
     Indication: Rhinitis allergic
  7. ALBUTEROL [Concomitant]
     Active Substance: ALBUTEROL
     Indication: Asthma
     Dosage: 2.5 MG/ 3 ML
     Dates: start: 2010
  8. ALBUTEROL [Concomitant]
     Active Substance: ALBUTEROL
     Indication: Rhinitis allergic
  9. MIRALAX [Concomitant]
     Active Substance: POLYETHYLENE GLYCOL 3350
     Indication: Constipation
     Dosage: 17 GRAM
     Dates: start: 2011
  10. ADVAIR HFA [Concomitant]
     Active Substance: FLUTICASONE PROPIONATE\SALMETEROL XINAFOATE
     Indication: Asthma
     Dosage: 100-50 MCG
     Dates: start: 2010
  11. ADVAIR HFA [Concomitant]
     Active Substance: FLUTICASONE PROPIONATE\SALMETEROL XINAFOATE
     Indication: Rhinitis allergic
  12. ZADITOR [Concomitant]
     Active Substance: KETOTIFEN FUMARATE
     Indication: Asthma
     Dosage: 1 GTT DROPS
     Dates: start: 2010
  13. ZADITOR [Concomitant]
     Active Substance: KETOTIFEN FUMARATE
     Indication: Rhinitis allergic
  14. ZITHROMAX [Concomitant]
     Active Substance: AZITHROMYCIN DIHYDRATE
     Indication: Asthma
     Dosage: 250 MILLIGRAM
     Dates: start: 2011
  15. ZITHROMAX [Concomitant]
     Active Substance: AZITHROMYCIN DIHYDRATE
     Indication: Rhinitis allergic
  16. ALLEGRA [Concomitant]
     Active Substance: FEXOFENADINE HYDROCHLORIDE
     Dosage: 180 MILLIGRAM
     Dates: start: 2011

REACTIONS (24)
  - Depression [Fatal]
  - Neuropsychological symptoms [Fatal]
  - Schizophrenia [Not Recovered/Not Resolved]
  - Mood swings [Not Recovered/Not Resolved]
  - Anger [Not Recovered/Not Resolved]
  - Attention deficit hyperactivity disorder [Not Recovered/Not Resolved]
  - Sleep disorder [Not Recovered/Not Resolved]
  - Abnormal dreams [Not Recovered/Not Resolved]
  - Petit mal epilepsy [Not Recovered/Not Resolved]
  - Syncope [Not Recovered/Not Resolved]
  - Schizoaffective disorder bipolar type [Not Recovered/Not Resolved]
  - Hallucination, auditory [Not Recovered/Not Resolved]
  - Catatonia [Not Recovered/Not Resolved]
  - Psychotic disorder [Not Recovered/Not Resolved]
  - Suicidal ideation [Not Recovered/Not Resolved]
  - Hypersensitivity [Unknown]
  - Asthma [Unknown]
  - Exposure to SARS-CoV-2 [Unknown]
  - Upper respiratory tract infection [Unknown]
  - Headache [Unknown]
  - Dyspnoea [Unknown]
  - Fatigue [Unknown]
  - Apathy [Unknown]
  - Personality disorder [Not Recovered/Not Resolved]

NARRATIVE: CASE EVENT DATE: 20090101
